FAERS Safety Report 15110184 (Version 1)
Quarter: 2018Q2

REPORT INFORMATION
  Report Type: Spontaneous
  Country: US (occurrence: US)
  Receive Date: 20180612
  Receipt Date: 20180612
  Transmission Date: 20180711
  Serious: Yes (Hospitalization)
  Sender: FDA-Public Use
  Company Number: None

PATIENT
  Age: 39 Year
  Sex: Male

DRUGS (1)
  1. LETAIRIS [Suspect]
     Active Substance: AMBRISENTAN
     Indication: SCLERODERMA
     Route: 048

REACTIONS (4)
  - Appendicitis [None]
  - Constipation [None]
  - Peritonitis [None]
  - Sepsis [None]

NARRATIVE: CASE EVENT DATE: 20180604
